FAERS Safety Report 9293259 (Version 1)
Quarter: 2013Q2

REPORT INFORMATION
  Report Type: Spontaneous
  Country: US (occurrence: US)
  Receive Date: 20130516
  Receipt Date: 20130516
  Transmission Date: 20140414
  Serious: Yes (Hospitalization, Other)
  Sender: FDA-Public Use
  Company Number: US-ELI_LILLY_AND_COMPANY-US201305003276

PATIENT
  Sex: Female

DRUGS (12)
  1. HUMULIN 30% REGULAR, 70% NPH [Suspect]
     Indication: TYPE 2 DIABETES MELLITUS
     Dosage: 30 U, EACH MORNING
     Dates: start: 2001
  2. HUMULIN 30% REGULAR, 70% NPH [Suspect]
     Dosage: 35 U, EACH EVENING
     Dates: start: 2001
  3. ATENOLOL [Concomitant]
     Dosage: 100 MG, QD
  4. AMLODIPINE [Concomitant]
  5. DIGOXIN [Concomitant]
     Dosage: 0.125 DF, UNKNOWN
  6. FUROSEMIDE [Concomitant]
     Dosage: 40 MG, UNKNOWN
  7. LISINOPRIL [Concomitant]
     Dosage: 10 MG, UNKNOWN
  8. LEVOTHYROXINE [Concomitant]
     Indication: ALOPECIA
     Dosage: UNK MEQ, UNK
  9. POTASSIUM [Concomitant]
     Dosage: 20 MEQ, PRN
  10. ASPIRIN [Concomitant]
     Dosage: 81 MG, BID
  11. NOVOLOG [Concomitant]
  12. LOVENOX [Concomitant]

REACTIONS (11)
  - Myocardial infarction [Unknown]
  - Loss of consciousness [Unknown]
  - Atrial fibrillation [Unknown]
  - Basal cell carcinoma [Unknown]
  - Hypersensitivity [Unknown]
  - Candida infection [Unknown]
  - Heparin-induced thrombocytopenia [Unknown]
  - Staphylococcal infection [Unknown]
  - Visual field defect [Unknown]
  - Blood glucose decreased [Unknown]
  - Blood glucose decreased [Unknown]
